FAERS Safety Report 7445669-2 (Version None)
Quarter: 2011Q2

REPORT INFORMATION
  Report Type: 
  Country: None (occurrence: None)
  Receive Date: 20110420
  Receipt Date: 20110310
  Transmission Date: 20111010
  Serious: No
  Sender: FDA-Public Use
  Company Number: 2011-00101

PATIENT
  Age: 33 Year
  Sex: Female
  Weight: 95.2554 kg

DRUGS (1)
  1. ZICAM INTENSE SINUS RELIEF [Suspect]
     Dosage: 1 DOSE
     Dates: start: 20110308, end: 20110308

REACTIONS (3)
  - NASAL DISCOMFORT [None]
  - EPISTAXIS [None]
  - ANOSMIA [None]
